FAERS Safety Report 8558228-5 (Version None)
Quarter: 2012Q3

REPORT INFORMATION
  Report Type: 
  Country: None (occurrence: None)
  Receive Date: 20120801
  Receipt Date: 20120725
  Transmission Date: 20120928
  Serious: Yes (Other)
  Sender: FDA-Public Use
  Company Number: PHHY2012PL064627

PATIENT
  Age: 33 Year
  Sex: Female

DRUGS (4)
  1. METHOTREXATE [Suspect]
     Dosage: 2.5 MG, BID
     Route: 048
  2. METHOTREXATE [Suspect]
     Dosage: 50 MG, UNK
  3. LEUCOVORIN CALCIUM [Suspect]
     Dosage: 10 MG
  4. METHOTREXATE [Suspect]
     Dosage: 70 MG, UNK

REACTIONS (3)
  - ABORTION SPONTANEOUS [None]
  - MATERNAL EXPOSURE DURING PREGNANCY [None]
  - PREMATURE SEPARATION OF PLACENTA [None]
